FAERS Safety Report 4816519-5 (Version None)
Quarter: 2005Q4

REPORT INFORMATION
  Report Type: 
  Country: None (occurrence: None)
  Receive Date: 20051101
  Receipt Date: 20051027
  Transmission Date: 20060501
  Serious: Yes (Life-Threatening, Hospitalization)
  Sender: FDA-Public Use
  Company Number: PHHO2005IT17026

PATIENT
  Age: 43 Year
  Sex: Female
  Weight: 68 kg

DRUGS (4)
  1. NEORAL [Suspect]
     Indication: HEART TRANSPLANT
     Dosage: NOT REPORTED
     Route: 048
     Dates: start: 20051016, end: 20051025
  2. NEORAL [Suspect]
     Dosage: REDUCED DOSE
     Route: 048
  3. AMIKACIN [Suspect]
     Indication: PSEUDOMONAS INFECTION
     Dosage: 500 MG, BID
     Route: 042
     Dates: start: 20051019, end: 20051025
  4. RAD [Suspect]
     Indication: HEART TRANSPLANT
     Dosage: 0.5 MG, BID
     Route: 048
     Dates: start: 20051018, end: 20051025

REACTIONS (5)
  - BLOOD CREATININE INCREASED [None]
  - OLIGURIA [None]
  - PERICARDIAL EFFUSION [None]
  - PSEUDOMONAS INFECTION [None]
  - RENAL FAILURE ACUTE [None]
